FAERS Safety Report 9105369 (Version 2)
Quarter: 2013Q1

REPORT INFORMATION
  Report Type: Spontaneous
  Country: GB (occurrence: GB)
  Receive Date: 20130220
  Receipt Date: 20130308
  Transmission Date: 20140127
  Serious: Yes (Other)
  Sender: FDA-Public Use
  Company Number: GB-GLAXOSMITHKLINE-B0868057A

PATIENT
  Sex: Male
  Weight: 160 kg

DRUGS (3)
  1. TROBALT [Suspect]
     Indication: PARTIAL SEIZURES
     Route: 065
     Dates: start: 201201
  2. LAMOTRIGINE [Concomitant]
     Dosage: 200MG TWICE PER DAY
  3. LACOSAMIDE [Concomitant]
     Dosage: 150MG TWICE PER DAY

REACTIONS (11)
  - Convulsion [Recovered/Resolved]
  - Loss of consciousness [Unknown]
  - Drug ineffective [Recovered/Resolved]
  - Dizziness [Recovered/Resolved]
  - Fatigue [Recovered/Resolved]
  - Paraesthesia [Recovered/Resolved]
  - Anxiety [Recovered/Resolved]
  - Aura [Unknown]
  - Headache [Unknown]
  - Disorientation [Unknown]
  - Somnolence [Unknown]
